FAERS Safety Report 5210655-X (Version None)
Quarter: 2007Q1

REPORT INFORMATION
  Report Type: 
  Country: None (occurrence: None)
  Receive Date: 20070116
  Receipt Date: 20070116
  Transmission Date: 20070707
  Serious: Yes (Disabling)
  Sender: FDA-Public Use
  Company Number: None

PATIENT
  Sex: Female
  Weight: 88.905 kg

DRUGS (3)
  1. FLEETS ORAL PHOSPHSODA PREP [Suspect]
     Indication: COLONOSCOPY
     Dosage: UNIT DOSE ONE DAY ORAL
     Route: 048
  2. DILTIAZEM [Concomitant]
  3. LUMIGAN [Concomitant]

REACTIONS (1)
  - RENAL DISORDER [None]
